FAERS Safety Report 16712453 (Version 1)
Quarter: 2019Q3

REPORT INFORMATION
  Report Type: Report from Study
  Country: US (occurrence: US)
  Receive Date: 20190816
  Receipt Date: 20190816
  Transmission Date: 20191004
  Serious: No
  Sender: FDA-Public Use
  Company Number: PHEH2019US033630

PATIENT
  Sex: Male

DRUGS (1)
  1. ENTRESTO [Suspect]
     Active Substance: SACUBITRIL\VALSARTAN
     Indication: PRODUCT USED FOR UNKNOWN INDICATION
     Dosage: 24MG SACUBITRIL/ 26MG VALSARTAN, UNK
     Route: 065

REACTIONS (6)
  - Erythema [Not Recovered/Not Resolved]
  - Pruritus [Unknown]
  - Oral herpes [Unknown]
  - Hypoacusis [Unknown]
  - Dysuria [Unknown]
  - Testicular swelling [Unknown]
